FAERS Safety Report 6718546-X (Version None)
Quarter: 2010Q2

REPORT INFORMATION
  Report Type: 
  Country: None (occurrence: None)
  Receive Date: 20100503
  Receipt Date: 20100423
  Transmission Date: 20101027
  Serious: Yes (Death, Hospitalization, Other)
  Sender: FDA-Public Use
  Company Number: 237980K09USA

PATIENT
  Age: 58 Year
  Sex: Female
  Weight: 117 kg

DRUGS (24)
  1. REBIF [Suspect]
     Indication: MULTIPLE SCLEROSIS
     Dosage: 44 MCG, 3 IN 1 WK, SUBCUTANEOUS
     Route: 058
     Dates: start: 20070709, end: 20090104
  2. CLINDAMYCIN HCL [Concomitant]
  3. BACLOFEN [Concomitant]
  4. ACIPHEX [Concomitant]
  5. NEXIUM [Concomitant]
  6. AMANTADINE HCL [Concomitant]
  7. ASPIRIN [Concomitant]
  8. CALCIUM WITH VITAMIN D [Concomitant]
  9. CITALOPRAM HYDROBROMIDE [Concomitant]
  10. CLONAZEPAM [Concomitant]
  11. ENALAPRIL MALEATE [Concomitant]
  12. FUROSEMIDE [Concomitant]
  13. LIPITOR [Concomitant]
  14. LYRICA [Concomitant]
  15. MECLIZINE [Concomitant]
  16. MELOXICAM [Concomitant]
  17. ONE A DAY VITAMIN SUPPLEMENT FOR WOMEN (ONE A DAY) [Concomitant]
  18. POTASSIUM CHLORIDE SUSTAINED RELEASE (POTASSIUM CHLORATE) [Concomitant]
  19. PROVIGIL [Concomitant]
  20. TIZANIDINE HCL [Concomitant]
  21. VITAMIN D [Concomitant]
  22. WARFARIN SODIUM [Concomitant]
  23. WELLBUTRIN XL [Concomitant]
  24. ZYPREXA [Concomitant]

REACTIONS (37)
  - ABSCESS [None]
  - ACUTE RESPIRATORY DISTRESS SYNDROME [None]
  - ACUTE RESPIRATORY FAILURE [None]
  - ADRENAL ADENOMA [None]
  - AGITATION [None]
  - ANAEMIA [None]
  - ASCITES [None]
  - CANDIDIASIS [None]
  - CARDIAC ARREST [None]
  - CAROTID ARTERY STENOSIS [None]
  - CLOSTRIDIUM TEST POSITIVE [None]
  - COLITIS [None]
  - DEEP VEIN THROMBOSIS [None]
  - DISEASE COMPLICATION [None]
  - DYSARTHRIA [None]
  - DYSPHAGIA [None]
  - ENCEPHALOPATHY [None]
  - FALL [None]
  - FEEDING TUBE COMPLICATION [None]
  - GASTROINTESTINAL HAEMORRHAGE [None]
  - GENERAL PHYSICAL HEALTH DETERIORATION [None]
  - HALLUCINATION [None]
  - HYPOTENSION [None]
  - INCOHERENT [None]
  - LACTIC ACIDOSIS [None]
  - MOUTH INJURY [None]
  - MUSCLE SPASTICITY [None]
  - PULMONARY EMBOLISM [None]
  - RENAL FAILURE ACUTE [None]
  - RESPIRATORY ARREST [None]
  - SEPSIS [None]
  - SKIN GRAFT [None]
  - SYNOVIAL CYST [None]
  - TRANSIENT ISCHAEMIC ATTACK [None]
  - TREMOR [None]
  - URINARY TRACT INFECTION [None]
  - WALKING AID USER [None]
